FAERS Safety Report 8939337 (Version 2)
Quarter: 2012Q4

REPORT INFORMATION
  Report Type: 
  Country: FR (occurrence: FR)
  Receive Date: 20121203
  Receipt Date: 20121226
  Transmission Date: 20130627
  Serious: Yes (Other)
  Sender: FDA-Public Use
  Company Number: FR-JNJFOC-20121112183

PATIENT
  Age: 99 Year
  Sex: Female

DRUGS (3)
  1. DUROGESIC [Suspect]
     Indication: OSTEOPOROSIS
     Route: 062
     Dates: start: 20121109, end: 20121129
  2. DUROGESIC [Suspect]
     Indication: OSTEOPOROSIS
     Route: 062
     Dates: start: 20121204
  3. DUROGESIC [Suspect]
     Indication: OSTEOPOROSIS
     Route: 062
     Dates: start: 20121127, end: 20121129

REACTIONS (5)
  - Respiratory depression [Recovered/Resolved]
  - Inappropriate schedule of drug administration [Unknown]
  - Nausea [Recovered/Resolved]
  - Drug prescribing error [Unknown]
  - Off label use [Unknown]
